FAERS Safety Report 9713700 (Version 1)
Quarter: 2013Q4

REPORT INFORMATION
  Report Type: Spontaneous
  Country: US (occurrence: None)
  Receive Date: 20131122
  Receipt Date: 20131122
  Transmission Date: 20140711
  Serious: Yes (Other)
  Sender: FDA-Public Use
  Company Number: AUR-APL-2013-09688

PATIENT
  Sex: Female

DRUGS (1)
  1. MONTELUKAST (MONTELUKAST) [Suspect]

REACTIONS (5)
  - Choking [None]
  - Blood glucose increased [None]
  - Dyspnoea [None]
  - Product substitution issue [None]
  - Therapeutic response unexpected with drug substitution [None]
